FAERS Safety Report 5689152-3 (Version None)
Quarter: 2008Q1

REPORT INFORMATION
  Report Type: 
  Country: None (occurrence: None)
  Receive Date: 20080331
  Receipt Date: 20080324
  Transmission Date: 20080703
  Serious: Yes (Hospitalization)
  Sender: FDA-Public Use
  Company Number: US-SANOFI-SYNTHELABO-F03200800009

PATIENT
  Sex: Male
  Weight: 69.4 kg

DRUGS (5)
  1. CETUXIMAB [Suspect]
     Indication: OESOPHAGEAL ADENOCARCINOMA
     Dosage: 250 MG/M2 ONCE PER WEEK FOR 12 WEEKS
     Route: 042
     Dates: start: 20071203, end: 20071203
  2. CETUXIMAB [Suspect]
     Dosage: 825 MG/M2 14 DAYS ON 7 DAYS OFF
     Route: 042
     Dates: start: 20071202, end: 20071202
  3. METOPROLOL TARTRATE [Concomitant]
     Indication: DRUG USE FOR UNKNOWN INDICATION
     Route: 048
  4. OXALIPLATIN [Suspect]
     Indication: OESOPHAGEAL ADENOCARCINOMA
     Dosage: 130 MG/M2 ONCE PER 21 DAYS
     Route: 042
     Dates: start: 20071008, end: 20071008
  5. ASPIRIN [Concomitant]
     Indication: DRUG USE FOR UNKNOWN INDICATION
     Route: 048

REACTIONS (9)
  - ATRIAL FIBRILLATION [None]
  - BLOOD CREATININE INCREASED [None]
  - DYSPNOEA [None]
  - INTERNATIONAL NORMALISED RATIO INCREASED [None]
  - LIVER FUNCTION TEST ABNORMAL [None]
  - PERICARDIAL EFFUSION [None]
  - PLEURAL EFFUSION [None]
  - RENAL INJURY [None]
  - TRANSAMINASES INCREASED [None]
